FAERS Safety Report 6187117-9 (Version None)
Quarter: 2009Q2

REPORT INFORMATION
  Report Type: 
  Country: None (occurrence: None)
  Receive Date: 20090512
  Receipt Date: 20090430
  Transmission Date: 20091009
  Serious: Yes (Life-Threatening, Other)
  Sender: FDA-Public Use
  Company Number: CN-PFIZER INC-2009201601

PATIENT
  Age: 75 Year

DRUGS (3)
  1. ZITHROMAX [Suspect]
     Indication: LUNG INFECTION
     Dosage: 0.5 G, 1X/DAY
     Route: 042
     Dates: start: 20090401, end: 20090401
  2. ZITHROMAX [Suspect]
     Route: 042
  3. METOPROLOL TARTRATE [Concomitant]

REACTIONS (1)
  - ANAPHYLACTIC SHOCK [None]
